FAERS Safety Report 6588222-5 (Version None)
Quarter: 2010Q1

REPORT INFORMATION
  Report Type: 
  Country: None (occurrence: None)
  Receive Date: 20100202
  Receipt Date: 20090909
  Transmission Date: 20100710
  Serious: No
  Sender: FDA-Public Use
  Company Number: 2009-00594

PATIENT
  Age: 76 Year
  Sex: Female
  Weight: 47.6277 kg

DRUGS (6)
  1. ZICAM COLD REMEDY GEL SWABS [Suspect]
     Dosage: BID, 1 WEEK, MAR 2009-AFTER 1 WK
  2. HYZAAR [Concomitant]
  3. VYTORIN [Concomitant]
  4. PLAVIX [Concomitant]
  5. CELEBREX [Concomitant]
  6. FORTEO [Suspect]

REACTIONS (2)
  - AGEUSIA [None]
  - ANOSMIA [None]
